FAERS Safety Report 9542208 (Version 1)
Quarter: 2013Q3

REPORT INFORMATION
  Report Type: Spontaneous
  Country: US (occurrence: US)
  Receive Date: 20130923
  Receipt Date: 20130923
  Transmission Date: 20140515
  Serious: Yes (Other)
  Sender: FDA-Public Use
  Company Number: US-BAYER-2013-110301

PATIENT
  Age: 59 Year
  Sex: Female

DRUGS (2)
  1. GADAVIST [Suspect]
     Indication: DEAFNESS BILATERAL
     Dosage: 10 ML, ONCE
     Route: 042
     Dates: start: 20130821, end: 20130821
  2. GADAVIST [Suspect]
     Indication: NUCLEAR MAGNETIC RESONANCE IMAGING BRAIN

REACTIONS (4)
  - Chest pain [None]
  - Dyspnoea [None]
  - Throat tightness [None]
  - Laryngeal oedema [None]
